FAERS Safety Report 4596031-1 (Version None)
Quarter: 2005Q1

REPORT INFORMATION
  Report Type: 
  Country: None (occurrence: None)
  Receive Date: 20050224
  Receipt Date: 20050224
  Transmission Date: 20050727
  Serious: Yes (Other)
  Sender: FDA-Public Use
  Company Number: None

PATIENT
  Age: 56 Year
  Sex: Female
  Weight: 73.4827 kg

DRUGS (2)
  1. LISINOPRIL [Suspect]
     Indication: HEART DISEASE CONGENITAL
     Dosage: 20 MG ONE PO DAILY
     Route: 048
     Dates: start: 20041219, end: 20050201
  2. DIGOXIN [Suspect]
     Indication: ATRIAL FIBRILLATION
     Dosage: 0.125 MG ONE PO DAILY
     Route: 048
     Dates: start: 20041219, end: 20050201

REACTIONS (4)
  - DYSPNOEA [None]
  - FATIGUE [None]
  - NAUSEA [None]
  - THERAPEUTIC RESPONSE UNEXPECTED WITH DRUG SUBSTITUTION [None]
